FAERS Safety Report 21467167 (Version 1)
Quarter: 2022Q4

REPORT INFORMATION
  Report Type: Report from Study
  Country: US (occurrence: US)
  Receive Date: 20221017
  Receipt Date: 20221017
  Transmission Date: 20230112
  Serious: Yes (Other)
  Sender: FDA-Public Use
  Company Number: US-BRISTOL-MYERS SQUIBB COMPANY-2022-120441

PATIENT
  Age: 87 Year
  Sex: Female
  Weight: 51.890 kg

DRUGS (1)
  1. REVLIMID [Suspect]
     Active Substance: LENALIDOMIDE
     Indication: 5q minus syndrome
     Dosage: FREQUENCY: 21 OUT OF 28 DAYS
     Route: 048
     Dates: start: 20220913

REACTIONS (3)
  - Fall [Unknown]
  - Foot fracture [Unknown]
  - Off label use [Unknown]
